FAERS Safety Report 8738883 (Version 3)
Quarter: 2018Q4

REPORT INFORMATION
  Report Type: Spontaneous
  Country: FR (occurrence: FR)
  Receive Date: 20120823
  Receipt Date: 20181109
  Transmission Date: 20190205
  Serious: Yes (Hospitalization)
  Sender: FDA-Public Use
  Company Number: FR-SANOFI-AVENTIS-2012SA059604

PATIENT
  Age: 69 Year
  Sex: Male

DRUGS (13)
  1. COLCHICINE. [Concomitant]
     Active Substance: COLCHICINE
     Dosage: UNK
  2. FORLAX [Concomitant]
     Active Substance: POLYETHYLENE GLYCOL 4000
     Dosage: UNK
  3. EZETROL [Concomitant]
     Active Substance: EZETIMIBE
     Dosage: UNK
  4. TAVANIC [Suspect]
     Active Substance: LEVOFLOXACIN
     Indication: ARTHRITIS
     Dosage: 500 MG, QD
     Route: 048
     Dates: start: 20120724, end: 20120727
  5. RIFADINE [Suspect]
     Active Substance: RIFAMPIN
     Indication: ARTHRITIS
     Dosage: 300 MG, QD
     Route: 048
     Dates: start: 20120724, end: 20120727
  6. INDAPAMIDE;PERINDOPRIL ARGININE [Concomitant]
     Dosage: UNK
  7. KARDEGIC [Concomitant]
     Active Substance: ASPIRIN DL-LYSINE
     Dosage: UNK
     Route: 048
  8. MONO-TILDIEM [Concomitant]
     Active Substance: DILTIAZEM HYDROCHLORIDE
     Dosage: UNK
     Route: 048
  9. TOPALGIC [TRAMADOL HYDROCHLORIDE] [Concomitant]
     Active Substance: TRAMADOL HYDROCHLORIDE
     Dosage: UNK
  10. INIPOMP [Concomitant]
     Active Substance: PANTOPRAZOLE SODIUM
     Dosage: UNK
  11. ATARAX [HYDROXYZINE] [Concomitant]
     Dosage: UNK
     Dates: start: 20120723
  12. CEFTRIAXONE. [Concomitant]
     Active Substance: CEFTRIAXONE
     Dosage: 2 G,QD
     Dates: start: 20120706, end: 20120723
  13. BIPRETERAX [INDAPAMIDE;PERINDOPRIL ERBUMINE] [Concomitant]

REACTIONS (2)
  - Confusional state [Recovered/Resolved]
  - Hallucination [Recovered/Resolved]

NARRATIVE: CASE EVENT DATE: 20120725
